FAERS Safety Report 5654951-0 (Version None)
Quarter: 2008Q1

REPORT INFORMATION
  Report Type: 
  Country: None (occurrence: None)
  Receive Date: 20080307
  Receipt Date: 20070918
  Transmission Date: 20080703
  Serious: No
  Sender: FDA-Public Use
  Company Number: A0683579A

PATIENT
  Sex: Male

DRUGS (2)
  1. REQUIP [Suspect]
     Indication: RESTLESS LEGS SYNDROME
     Dosage: 1MG UNKNOWN
     Route: 048
  2. MIRAPEX [Concomitant]
     Indication: RESTLESS LEGS SYNDROME
     Dosage: .25MG UNKNOWN
     Route: 048

REACTIONS (3)
  - BRONCHOSPASM [None]
  - SENSATION OF FOREIGN BODY [None]
  - THERAPEUTIC RESPONSE DECREASED [None]
